FAERS Safety Report 8152853-1 (Version None)
Quarter: 2012Q1

REPORT INFORMATION
  Report Type: 
  Country: None (occurrence: None)
  Receive Date: 20120221
  Receipt Date: 20120110
  Transmission Date: 20120608
  Serious: Yes (Other)
  Sender: FDA-Public Use
  Company Number: CA-JNJFOC-20120110570

PATIENT
  Sex: Male
  Weight: 89 kg

DRUGS (10)
  1. REMICADE [Suspect]
     Indication: CROHN'S DISEASE
     Route: 042
     Dates: start: 20090810
  2. HYDROMORPH [Concomitant]
     Route: 065
  3. MELOXICAM [Concomitant]
     Route: 065
  4. FERROUS SULFATE TAB [Concomitant]
     Route: 065
  5. ALTACE [Concomitant]
     Dosage: DOSE: 50 (UNITS UNSPECIFIED)
     Route: 065
  6. RENEDIL [Concomitant]
     Route: 065
  7. GLICLAZIDE [Concomitant]
     Dosage: DOSE: 80 (UNITS UNSPECIFIED)
     Route: 065
  8. CRESTOR [Concomitant]
     Route: 065
  9. HYZAAR [Concomitant]
     Dosage: 50/12.5 DOSE (UNITS UNSPECIFIED)
     Route: 065
  10. METHOTREXATE [Concomitant]
     Route: 065

REACTIONS (1)
  - ARTHROPATHY [None]
